FAERS Safety Report 10685585 (Version 1)
Quarter: 2014Q4

REPORT INFORMATION
  Report Type: Spontaneous
  Country: US (occurrence: None)
  Receive Date: 20141229
  Receipt Date: 20141229
  Transmission Date: 20150529
  Serious: Yes (Hospitalization)
  Sender: FDA-Public Use
  Company Number: UCM201412-000249

PATIENT
  Age: 16 Year
  Sex: Male

DRUGS (1)
  1. AMLODIPINE [Suspect]
     Active Substance: AMLODIPINE BESYLATE
     Dosage: 30 TABLETS

REACTIONS (6)
  - Abdominal pain [None]
  - Toxicity to various agents [None]
  - Arrhythmia [None]
  - Nausea [None]
  - Intentional overdose [None]
  - Distributive shock [None]
